FAERS Safety Report 9310863 (Version 1)
Quarter: 2013Q2

REPORT INFORMATION
  Report Type: Report from Study
  Country: US (occurrence: US)
  Receive Date: 20130528
  Receipt Date: 20130528
  Transmission Date: 20140414
  Serious: Yes (Other)
  Sender: FDA-Public Use
  Company Number: US-BAYER-2013-061396

PATIENT
  Age: 49 Year
  Sex: Female

DRUGS (9)
  1. BETASERON [Suspect]
     Indication: MULTIPLE SCLEROSIS
     Dosage: 6 MIU, QOD
     Route: 058
     Dates: start: 20130415
  2. CYMBALTA [Concomitant]
  3. IBUPROFEN [Concomitant]
     Indication: PREMEDICATION
  4. NEURONTIN [Concomitant]
  5. TRAMADOL [Concomitant]
  6. ATIVAN [Concomitant]
  7. COUMADIN [Concomitant]
  8. LOVENOX [Concomitant]
  9. VITAMIN B COMPLEX [Concomitant]

REACTIONS (2)
  - Injection site pain [Not Recovered/Not Resolved]
  - Post procedural haemorrhage [Recovering/Resolving]
